FAERS Safety Report 9849865 (Version 1)
Quarter: 2014Q1

REPORT INFORMATION
  Report Type: Spontaneous
  Country: US (occurrence: None)
  Receive Date: 20140124
  Receipt Date: 20140124
  Transmission Date: 20141002
  Serious: Yes (Hospitalization)
  Sender: FDA-Public Use
  Company Number: None

PATIENT
  Age: 62 Year
  Sex: Female
  Weight: 55.34 kg

DRUGS (1)
  1. STIVARGA 40 MG BAYER [Suspect]
     Indication: COLON CANCER STAGE IV
     Dosage: 4 PILLS DAILY FOR 21 DAYS  ONCE DAILY  TAKEN BY MOUTH
     Route: 048
     Dates: start: 20131222, end: 20140123

REACTIONS (6)
  - Rash generalised [None]
  - Hepatic function abnormal [None]
  - Skin exfoliation [None]
  - Electrolyte imbalance [None]
  - Platelet count decreased [None]
  - Pyrexia [None]
